FAERS Safety Report 8731328 (Version 3)
Quarter: 2013Q4

REPORT INFORMATION
  Report Type: Spontaneous
  Country: GB (occurrence: GB)
  Receive Date: 20120820
  Receipt Date: 20131031
  Transmission Date: 20140711
  Serious: Yes (Hospitalization)
  Sender: FDA-Public Use
  Company Number: GB-009507513-2006-140455-NL

PATIENT
  Age: 21 Year
  Sex: Female
  Weight: 65 kg

DRUGS (2)
  1. IMPLANON [Suspect]
     Indication: CONTRACEPTION
     Dosage: UNK
     Dates: start: 20041020, end: 20060329
  2. VENLAFAXINE HYDROCHLORIDE [Concomitant]
     Indication: AFFECTIVE DISORDER
     Dosage: UNK DF, UNK
     Route: 048

REACTIONS (1)
  - Benign intracranial hypertension [Unknown]
